FAERS Safety Report 9632346 (Version 1)
Quarter: 2013Q4

REPORT INFORMATION
  Report Type: Spontaneous
  Country: US (occurrence: None)
  Receive Date: 20131018
  Receipt Date: 20131018
  Transmission Date: 20140711
  Serious: Yes (Hospitalization)
  Sender: FDA-Public Use
  Company Number: None

PATIENT
  Age: 24 Year
  Sex: Male

DRUGS (6)
  1. DACLATASVIR [Suspect]
     Indication: CHRONIC HEPATITIS C
     Route: 048
     Dates: start: 20130820
  2. SOFOSBUVIR [Concomitant]
  3. EPOETIN ALFA [Concomitant]
  4. RIFAXIM [Concomitant]
  5. MICAFUNGIN [Concomitant]
  6. MERIPENUM [Concomitant]

REACTIONS (1)
  - Haemoglobin decreased [None]
